FAERS Safety Report 5317573-7 (Version None)
Quarter: 2007Q2

REPORT INFORMATION
  Report Type: 
  Country: None (occurrence: None)
  Receive Date: 20070507
  Receipt Date: 20070425
  Transmission Date: 20071010
  Serious: Yes (Other)
  Sender: FDA-Public Use
  Company Number: PHEH2007US04797

PATIENT
  Age: 76 Year
  Sex: Female

DRUGS (10)
  1. ZELNORM [Suspect]
     Indication: IRRITABLE BOWEL SYNDROME
     Dosage: 6 MG, BID
     Route: 048
     Dates: start: 20051101, end: 20070401
  2. VITAMIN CAP [Concomitant]
  3. SPIRONOLACTONE W/ HYDROCHLOROTHIAZIDE [Concomitant]
     Indication: CARDIAC DISORDER
  4. CLOPIDOGREL [Concomitant]
     Indication: CARDIAC DISORDER
  5. VYTORIN [Concomitant]
     Indication: HYPERCHOLESTEROLAEMIA
  6. PROTONIX [Concomitant]
     Indication: GASTROOESOPHAGEAL REFLUX DISEASE
  7. DYNACIRC [Concomitant]
     Indication: CORONARY ARTERY DISEASE
  8. PAXIL [Concomitant]
     Indication: ANXIETY
  9. XANAX [Concomitant]
  10. ASPIRIN [Concomitant]

REACTIONS (9)
  - BLOOD THYROID STIMULATING HORMONE INCREASED [None]
  - CORONARY ARTERIAL STENT INSERTION [None]
  - FAECES DISCOLOURED [None]
  - FAECES HARD [None]
  - HAEMATOCRIT DECREASED [None]
  - HAEMOGLOBIN DECREASED [None]
  - HYPOTHYROIDISM [None]
  - PAINFUL DEFAECATION [None]
  - RED BLOOD CELL COUNT DECREASED [None]
